FAERS Safety Report 14750117 (Version 5)
Quarter: 2018Q3

REPORT INFORMATION
  Report Type: Report from Study
  Country: US (occurrence: US)
  Receive Date: 20180412
  Receipt Date: 20180718
  Transmission Date: 20181010
  Serious: Yes (Hospitalization, Other)
  Sender: FDA-Public Use
  Company Number: US-GILEAD-2018-0331993

PATIENT
  Age: 52 Year
  Sex: Female

DRUGS (5)
  1. AMBRISENTAN [Suspect]
     Active Substance: AMBRISENTAN
     Indication: PRODUCT USED FOR UNKNOWN INDICATION
     Dosage: 5 MG, QD
     Route: 065
     Dates: start: 20170119
  2. TYVASO [Concomitant]
     Active Substance: TREPROSTINIL
  3. TYLENOL [Suspect]
     Active Substance: ACETAMINOPHEN
     Indication: PRODUCT USED FOR UNKNOWN INDICATION
     Dosage: UNK
     Route: 065
  4. DILTIAZEM. [Concomitant]
     Active Substance: DILTIAZEM
  5. COUMADIN [Concomitant]
     Active Substance: WARFARIN SODIUM

REACTIONS (22)
  - Back pain [Unknown]
  - Sinusitis [Recovered/Resolved]
  - Systemic lupus erythematosus [Not Recovered/Not Resolved]
  - Spondylitis [Not Recovered/Not Resolved]
  - Rhinorrhoea [Unknown]
  - Headache [Unknown]
  - Upper respiratory tract infection [Unknown]
  - Visual impairment [Not Recovered/Not Resolved]
  - Diabetes mellitus [Not Recovered/Not Resolved]
  - Bronchitis [Unknown]
  - Dizziness [Unknown]
  - Unevaluable event [Unknown]
  - Pain [Not Recovered/Not Resolved]
  - Blood glucose increased [Unknown]
  - Sleep apnoea syndrome [Unknown]
  - Feeding disorder [Unknown]
  - Productive cough [Unknown]
  - Secretion discharge [Not Recovered/Not Resolved]
  - Vision blurred [Not Recovered/Not Resolved]
  - Cough [Not Recovered/Not Resolved]
  - Pneumonia [Unknown]
  - Bronchitis [Recovered/Resolved]

NARRATIVE: CASE EVENT DATE: 201803
